FAERS Safety Report 5374807-0 (Version None)
Quarter: 2007Q2

REPORT INFORMATION
  Report Type: 
  Country: None (occurrence: None)
  Receive Date: 20070629
  Receipt Date: 20070625
  Transmission Date: 20071010
  Serious: Yes (Hospitalization)
  Sender: FDA-Public Use
  Company Number: A0659951A

PATIENT
  Sex: Female

DRUGS (5)
  1. AVANDAMET [Suspect]
     Dosage: 1TSP TWICE PER DAY
     Route: 048
  2. AVANDIA [Suspect]
  3. METFORMIN HCL [Concomitant]
  4. GLYBURIDE [Concomitant]
  5. FOSAMAX [Concomitant]

REACTIONS (3)
  - BLOOD GLUCOSE DECREASED [None]
  - MEDICATION ERROR [None]
  - OVERDOSE [None]
